FAERS Safety Report 15030648 (Version 5)
Quarter: 2022Q4

REPORT INFORMATION
  Report Type: Spontaneous
  Country: FR (occurrence: FR)
  Receive Date: 20180619
  Receipt Date: 20221222
  Transmission Date: 20230112
  Serious: Yes (Other)
  Sender: FDA-Public Use
  Company Number: FR-GILEAD-2018-0345548

PATIENT
  Age: 50 Year
  Sex: Male
  Weight: 65 kg

DRUGS (1)
  1. VIREAD [Suspect]
     Active Substance: TENOFOVIR DISOPROXIL FUMARATE
     Indication: Hepatitis B
     Dosage: 1 DF, QD
     Route: 065
     Dates: start: 20100528, end: 20180922

REACTIONS (10)
  - Adenocarcinoma [Recovered/Resolved]
  - Osteoporosis [Recovering/Resolving]
  - Renal tubular dysfunction [Recovered/Resolved]
  - Renal failure [Recovered/Resolved]
  - Blood creatinine increased [Recovered/Resolved]
  - Osteopenia [Not Recovered/Not Resolved]
  - Hypercalciuria [Unknown]
  - Hypophosphataemia [Unknown]
  - Urine phosphorus abnormal [Unknown]
  - Hypoferritinaemia [Unknown]

NARRATIVE: CASE EVENT DATE: 20130401
